FAERS Safety Report 5835615-7 (Version None)
Quarter: 2008Q3

REPORT INFORMATION
  Report Type: 
  Country: None (occurrence: None)
  Receive Date: 20080806
  Receipt Date: 20080801
  Transmission Date: 20090109
  Serious: Yes (Death, Other)
  Sender: FDA-Public Use
  Company Number: PHFR2007GB02422

PATIENT
  Age: 51 Year
  Sex: Male
  Weight: 73.3 kg

DRUGS (7)
  1. CLOMIPRAMINE HCL [Suspect]
     Dosage: 125MG/DAY
     Route: 048
     Dates: start: 20061201
  2. CLOZAPINE [Suspect]
     Indication: SCHIZOAFFECTIVE DISORDER
     Dosage: 200MG/DAY
     Route: 048
     Dates: start: 20000101
  3. AMISULPRIDE [Concomitant]
     Indication: SCHIZOAFFECTIVE DISORDER
     Dosage: 200 MG, BID
     Route: 048
  4. LITHIUM CARBONATE [Concomitant]
     Indication: SCHIZOAFFECTIVE DISORDER
     Dosage: 500 MG, QD
     Route: 048
  5. MOVICOL [Concomitant]
     Indication: CONSTIPATION
     Dosage: 1 DF, UNK
     Route: 048
     Dates: start: 20040101
  6. PROCYCLIDINE HYDROCHLORIDE 2MG TAB [Concomitant]
     Indication: EXTRAPYRAMIDAL DISORDER
     Dosage: 5 MG, BID
     Route: 048
  7. VENLAFAXINE HCL [Concomitant]

REACTIONS (10)
  - ABDOMINAL DISTENSION [None]
  - AUTONOMIC NEUROPATHY [None]
  - CHEST DISCOMFORT [None]
  - COLONIC ATONY [None]
  - CONSTIPATION [None]
  - DIABETES MELLITUS [None]
  - KYPHOSIS [None]
  - PSYCHOTIC DISORDER [None]
  - RESPIRATORY FAILURE [None]
  - SCHIZOPHRENIA [None]
